FAERS Safety Report 24149787 (Version 1)
Quarter: 2024Q3

REPORT INFORMATION
  Report Type: Spontaneous
  Country: DE (occurrence: DE)
  Receive Date: 20240730
  Receipt Date: 20240730
  Transmission Date: 20241017
  Serious: No
  Sender: ALKEM
  Company Number: None

PATIENT
  Age: 36 Year
  Sex: Female
  Weight: 63 kg

DRUGS (1)
  1. CEFUROXIME AXETIL [Suspect]
     Active Substance: CEFUROXIME AXETIL
     Indication: Nasal abscess
     Dosage: 250 MILLIGRAM, TID, FILM-COATED TABLET
     Route: 048
     Dates: start: 20230715, end: 20230718

REACTIONS (12)
  - Wheezing [Not Recovered/Not Resolved]
  - Tongue blistering [Not Recovered/Not Resolved]
  - Dry mouth [Not Recovered/Not Resolved]
  - Blister [Not Recovered/Not Resolved]
  - Tongue discomfort [Not Recovered/Not Resolved]
  - Sensation of foreign body [Not Recovered/Not Resolved]
  - Laryngeal pain [Not Recovered/Not Resolved]
  - Oropharyngeal pain [Not Recovered/Not Resolved]
  - Cough [Not Recovered/Not Resolved]
  - Glossodynia [Not Recovered/Not Resolved]
  - Throat irritation [Not Recovered/Not Resolved]
  - Suspected product quality issue [Unknown]

NARRATIVE: CASE EVENT DATE: 20230715
